FAERS Safety Report 5413271-X (Version None)
Quarter: 2007Q3

REPORT INFORMATION
  Report Type: 
  Country: None (occurrence: None)
  Receive Date: 20070814
  Receipt Date: 20070808
  Transmission Date: 20080115
  Serious: Yes (Other)
  Sender: FDA-Public Use
  Company Number: US-BAYER-200712549BCC

PATIENT
  Age: 65 Year
  Sex: Female
  Weight: 73 kg

DRUGS (2)
  1. CAMPHO-PHENIQUE COLD SORE GEL [Suspect]
     Indication: ACCIDENTAL EXPOSURE
     Route: 047
     Dates: start: 20070806
  2. SYNTHROID [Concomitant]

REACTIONS (3)
  - EYE BURNS [None]
  - EYE PAIN [None]
  - VISUAL ACUITY REDUCED [None]
